FAERS Safety Report 7801644-7 (Version None)
Quarter: 2011Q4

REPORT INFORMATION
  Report Type: 
  Country: None (occurrence: None)
  Receive Date: 20111006
  Receipt Date: 20110927
  Transmission Date: 20120403
  Serious: Yes (Hospitalization)
  Sender: FDA-Public Use
  Company Number: 2011029900

PATIENT
  Age: 45 Year
  Sex: Female
  Weight: 138 kg

DRUGS (11)
  1. ALLEGRA [Concomitant]
  2. PROZAC [Concomitant]
  3. MULTIVITAMIN (DAILY MULTIVITAMIN) [Concomitant]
  4. DOXEPIN HCL [Concomitant]
  5. COMBIVENT [Concomitant]
  6. ZEMAIRA [Suspect]
     Indication: ALPHA-1 ANTI-TRYPSIN INCREASED
     Dosage: (60 MG/KG 1X/WEEK, INFUSED AT A RATE OF 0.08 ML/KG/MIN (4.7 ML/MIN) INTRAVENOUS
     Route: 042
     Dates: start: 20110922
  7. ZEMAIRA [Suspect]
     Indication: ALPHA-1 ANTI-TRYPSIN INCREASED
     Dosage: (60 MG/KG 1X/WEEK, INFUSED AT A RATE OF 0.08 ML/KG/MIN (4.7 ML/MIN) INTRAVENOUS
     Route: 042
     Dates: start: 20110524
  8. SYMBICORT [Concomitant]
  9. VALIUM [Concomitant]
  10. SODIUM CHLORIDE 0.9% [Concomitant]
  11. XANAFLEX (TIZANIDINE) [Concomitant]

REACTIONS (7)
  - FATIGUE [None]
  - DYSPNOEA [None]
  - OROPHARYNGEAL PAIN [None]
  - PAIN [None]
  - PULMONARY CONGESTION [None]
  - PYREXIA [None]
  - INSOMNIA [None]
